FAERS Safety Report 10225480 (Version 1)
Quarter: 2014Q2

REPORT INFORMATION
  Report Type: Spontaneous
  Country: US (occurrence: US)
  Receive Date: 20140609
  Receipt Date: 20140609
  Transmission Date: 20141212
  Serious: Yes (Hospitalization, Other)
  Sender: FDA-Public Use
  Company Number: US-ASTELLAS-2014US002960

PATIENT
  Sex: Female

DRUGS (3)
  1. PROGRAF [Suspect]
     Indication: HEART TRANSPLANT
     Dosage: 5MG MORNING AND 6MG EVENING
     Route: 050
  2. PROGRAF [Suspect]
     Indication: LIVER TRANSPLANT
     Dosage: 5MG MORNING AND 6MG EVENING
     Route: 042
  3. PROGRAF [Suspect]
     Indication: PANCREAS TRANSPLANT

REACTIONS (6)
  - Incorrect route of drug administration [Unknown]
  - Wrong technique in drug usage process [Unknown]
  - Off label use [Unknown]
  - Transplant rejection [Unknown]
  - Clostridium difficile infection [Unknown]
  - Immunosuppressant drug level decreased [Unknown]
